FAERS Safety Report 16698078 (Version 1)
Quarter: 2019Q3

REPORT INFORMATION
  Report Type: Spontaneous
  Country: JP (occurrence: JP)
  Receive Date: 20190813
  Receipt Date: 20190813
  Transmission Date: 20191004
  Serious: Yes (Hospitalization, Other)
  Sender: FDA-Public Use
  Company Number: JP-SA-2017SA163754

PATIENT
  Age: 44 Year
  Sex: Male
  Weight: 65 kg

DRUGS (16)
  1. IRINOTECAN [Suspect]
     Active Substance: IRINOTECAN
     Dosage: 179.1 MG,QCY
     Route: 041
     Dates: start: 20170817, end: 20170817
  2. PICILLIBACTA [Concomitant]
     Active Substance: AMPICILLIN SODIUM\SULBACTAM SODIUM
     Dosage: UNK
     Dates: start: 20170515, end: 20170521
  3. BEVACIZUMAB. [Suspect]
     Active Substance: BEVACIZUMAB
     Dosage: 327 MG,QCY
     Route: 041
     Dates: start: 20170817, end: 20170817
  4. ELPLAT [Suspect]
     Active Substance: OXALIPLATIN
     Dosage: 152.2 MG,QCY
     Route: 041
     Dates: start: 20170817, end: 20170817
  5. BEVACIZUMAB. [Suspect]
     Active Substance: BEVACIZUMAB
     Indication: RECTAL CANCER
     Dosage: 327 MG,QCY
     Route: 041
     Dates: start: 20170509, end: 20170509
  6. CALCIUM LEVOFOLINATE [Suspect]
     Active Substance: LEVOLEUCOVORIN CALCIUM
     Dosage: 358.2 MG,QCY
     Route: 041
     Dates: start: 20170817
  7. ZOSYN [Concomitant]
     Active Substance: PIPERACILLIN SODIUM\TAZOBACTAM SODIUM
     Indication: PYELONEPHRITIS
     Dosage: UNK UNK,UNK
     Route: 065
     Dates: start: 20170826, end: 20170904
  8. IRINOTECAN [Suspect]
     Active Substance: IRINOTECAN
     Indication: RECTAL CANCER
     Dosage: 179.1 MG,QCY
     Route: 041
     Dates: start: 20170509, end: 20170509
  9. FLUOROURACIL. [Suspect]
     Active Substance: FLUOROURACIL
     Indication: RECTAL CANCER
     Dosage: 5731.2 MG,QOD
     Route: 041
     Dates: start: 20170509, end: 20170509
  10. CALCIUM LEVOFOLINATE [Suspect]
     Active Substance: LEVOLEUCOVORIN CALCIUM
     Indication: RECTAL CANCER
     Dosage: 358.2 MG,QCY
     Route: 041
     Dates: start: 20170509, end: 20170509
  11. CALONAL [Concomitant]
     Active Substance: ACETAMINOPHEN
     Dosage: UNK UNK,UNK
     Route: 065
     Dates: start: 20170403
  12. CEFTRIAXONE SODIUM HYDRATE [Concomitant]
     Active Substance: CEFTRIAXONE SODIUM
     Dosage: UNK
     Dates: start: 20170514, end: 20170514
  13. ELPLAT [Suspect]
     Active Substance: OXALIPLATIN
     Indication: RECTAL CANCER
     Dosage: 152.2 MG,QCY
     Route: 041
     Dates: start: 20170509, end: 20170509
  14. FLUOROURACIL. [Suspect]
     Active Substance: FLUOROURACIL
     Dosage: 5731.2 MG,QOD
     Route: 041
     Dates: start: 20170817, end: 20170817
  15. ZOSYN [Concomitant]
     Active Substance: PIPERACILLIN SODIUM\TAZOBACTAM SODIUM
     Indication: SEPSIS
  16. LEVOFLOXACIN HEMIHYDRATE [Concomitant]
     Active Substance: LEVOFLOXACIN
     Dosage: UNK
     Route: 048
     Dates: start: 20170522, end: 20170602

REACTIONS (13)
  - Sepsis [Recovered/Resolved]
  - Febrile neutropenia [Unknown]
  - Malaise [Unknown]
  - Haematuria [Unknown]
  - Alopecia [Unknown]
  - Peripheral sensory neuropathy [Unknown]
  - Diarrhoea [Unknown]
  - Lower gastrointestinal haemorrhage [Unknown]
  - Hiccups [Unknown]
  - Nausea [Unknown]
  - Pyelonephritis [Recovered/Resolved]
  - Decreased appetite [Unknown]
  - Urinary tract infection [Unknown]

NARRATIVE: CASE EVENT DATE: 20170513
